FAERS Safety Report 5444275-9 (Version None)
Quarter: 2007Q3

REPORT INFORMATION
  Report Type: 
  Country: None (occurrence: None)
  Receive Date: 20070904
  Receipt Date: 20070904
  Transmission Date: 20080115
  Serious: No
  Sender: FDA-Public Use
  Company Number: None

PATIENT
  Age: 67 Year
  Sex: Female
  Weight: 113.3993 kg

DRUGS (2)
  1. FUROSEMIDE [Suspect]
     Indication: FLUID RETENTION
     Dosage: 1 EVERY MORNING PO
     Route: 048
     Dates: start: 20070711, end: 20070810
  2. LEVOTHYROXIN 100MG MYLAN [Suspect]
     Indication: HYPOTHYROIDISM
     Dosage: 1 EVERY MORNING PO
     Route: 048
     Dates: start: 20070104, end: 20070810

REACTIONS (3)
  - NO THERAPEUTIC RESPONSE [None]
  - PHARMACEUTICAL PRODUCT COMPLAINT [None]
  - POOR QUALITY DRUG ADMINISTERED [None]
